FAERS Safety Report 5260983-7 (Version None)
Quarter: 2007Q1

REPORT INFORMATION
  Report Type: 
  Country: None (occurrence: None)
  Receive Date: 20070309
  Receipt Date: 20070301
  Transmission Date: 20070707
  Serious: Yes (Hospitalization)
  Sender: FDA-Public Use
  Company Number: US-ABBOTT-07P-163-0360901-00

PATIENT
  Sex: Female
  Weight: 91 kg

DRUGS (6)
  1. HUMIRA [Suspect]
     Indication: RHEUMATOID ARTHRITIS
     Route: 058
     Dates: start: 20060201
  2. HYDROCHLOROTHIAZIDE [Concomitant]
     Indication: BLOOD PRESSURE
     Route: 048
     Dates: start: 19910101
  3. HYDROCHLOROTHIAZIDE [Concomitant]
     Indication: FLUID RETENTION
  4. HYDRALAZINE HCL [Concomitant]
     Indication: BLOOD PRESSURE
     Route: 048
     Dates: start: 20060901
  5. POTASSIUM ACETATE [Concomitant]
     Indication: DIURETIC EFFECT
     Route: 048
  6. TAVET [Concomitant]
     Indication: BLOOD PRESSURE
     Route: 048
     Dates: start: 20060901

REACTIONS (2)
  - BRONCHITIS CHRONIC [None]
  - OEDEMA [None]
